FAERS Safety Report 15368401 (Version 2)
Quarter: 2018Q4

REPORT INFORMATION
  Report Type: Report from Study
  Country: JP (occurrence: JP)
  Receive Date: 20180910
  Receipt Date: 20180921
  Transmission Date: 20190204
  Serious: Yes (Hospitalization)
  Sender: FDA-Public Use
  Company Number: JP-COLLEGIUM PHARMACEUTICAL, INC.-JP-2018COL014172

PATIENT
  Age: 35 Year
  Sex: Male
  Weight: 75.3 kg

DRUGS (25)
  1. CISPLATIN. [Suspect]
     Active Substance: CISPLATIN
     Dosage: 45 MG, QD
     Dates: start: 20170703, end: 20170703
  2. MYSTAN [Concomitant]
     Active Substance: CLOBAZAM
     Indication: JUVENILE MYOCLONIC EPILEPSY
     Dosage: UNK
  3. BIOFERMIN                          /07958301/ [Concomitant]
     Indication: COLITIS ULCERATIVE
     Dosage: UNK
     Dates: start: 20170720, end: 20170731
  4. GEMCITABINE HYDROCHLORIDE. [Suspect]
     Active Substance: GEMCITABINE HYDROCHLORIDE
     Dosage: 1900 MG, QD
     Dates: start: 20170703, end: 20170703
  5. TAKECAB [Concomitant]
     Active Substance: VONOPRAZAN FUMURATE
     Indication: PROPHYLAXIS
     Dosage: UNK
  6. GEMCITABINE HYDROCHLORIDE. [Suspect]
     Active Substance: GEMCITABINE HYDROCHLORIDE
     Dosage: 1900 MG, QD
     Dates: start: 20170710, end: 20170710
  7. MIYA-BM [Concomitant]
     Active Substance: CLOSTRIDIUM BUTYRICUM SPORES STRAIN M-55
     Indication: COLITIS ULCERATIVE
     Dosage: UNK
  8. DEXART [Concomitant]
     Active Substance: DEXAMETHASONE SODIUM PHOSPHATE
     Dosage: UNK
     Dates: start: 20170703, end: 20170703
  9. ALOXI [Concomitant]
     Active Substance: PALONOSETRON HYDROCHLORIDE
     Indication: PROPHYLAXIS
     Dosage: UNK
     Dates: start: 20170703, end: 20170703
  10. TS-1 [Concomitant]
     Active Substance: GIMERACIL\OTERACIL\TEGAFUR
     Indication: BILE DUCT CANCER
     Dosage: UNK
     Dates: start: 20170731
  11. GEMCITABINE HYDROCHLORIDE. [Suspect]
     Active Substance: GEMCITABINE HYDROCHLORIDE
     Indication: BILE DUCT CANCER
     Dosage: 1900 MG, QD
     Dates: start: 20170619, end: 20170619
  12. CISPLATIN. [Suspect]
     Active Substance: CISPLATIN
     Indication: BILE DUCT CANCER
     Dosage: 45 MG, QD
     Dates: start: 20170619, end: 20170619
  13. URSODEOXYCHOLIC ACID [Concomitant]
     Active Substance: URSODIOL
     Indication: CHOLANGITIS SCLEROSING
     Dosage: UNK
  14. SODIUM VALPROATE [Concomitant]
     Active Substance: VALPROATE SODIUM
     Indication: JUVENILE MYOCLONIC EPILEPSY
     Dosage: UNK
  15. EMEND [Concomitant]
     Active Substance: APREPITANT
     Indication: PROPHYLAXIS
     Dosage: UNK
  16. DEXART [Concomitant]
     Active Substance: DEXAMETHASONE SODIUM PHOSPHATE
     Indication: PROPHYLAXIS
     Dosage: UNK
     Dates: start: 20170619, end: 20170619
  17. DEXART [Concomitant]
     Active Substance: DEXAMETHASONE SODIUM PHOSPHATE
     Dosage: UNK
     Dates: start: 20170710, end: 20170710
  18. LEVOFLOXACIN. [Concomitant]
     Active Substance: LEVOFLOXACIN
     Dosage: UNK
     Dates: start: 20170717, end: 20170726
  19. LEVOFLOXACIN. [Concomitant]
     Active Substance: LEVOFLOXACIN
     Indication: CHOLECYSTITIS ACUTE
     Dosage: UNK
     Dates: start: 20170619, end: 20170624
  20. GRANISETRON HYDROCHLORIDE. [Concomitant]
     Active Substance: GRANISETRON HYDROCHLORIDE
     Indication: PROPHYLAXIS
     Dosage: UNK
  21. ALOXI [Concomitant]
     Active Substance: PALONOSETRON HYDROCHLORIDE
     Dosage: UNK
     Dates: start: 20170710, end: 20170710
  22. TAPENTADOL EXTENDED RELEASE [Suspect]
     Active Substance: TAPENTADOL
     Indication: CANCER PAIN
     Dosage: 25 MG, BID
     Route: 048
     Dates: start: 20170619, end: 20170730
  23. OXYCONTIN [Concomitant]
     Active Substance: OXYCODONE HYDROCHLORIDE
     Indication: CANCER PAIN
     Dosage: UNK
     Dates: start: 20170817
  24. TAPENTADOL EXTENDED RELEASE [Suspect]
     Active Substance: TAPENTADOL
     Dosage: 50 MG, BID
     Route: 048
     Dates: start: 20170731
  25. CISPLATIN. [Suspect]
     Active Substance: CISPLATIN
     Dosage: 45 MG, QD
     Dates: start: 20170710, end: 20170710

REACTIONS (6)
  - Decreased appetite [Recovering/Resolving]
  - Cholangitis [Recovering/Resolving]
  - Tumour associated fever [Not Recovered/Not Resolved]
  - Pyrexia [Recovering/Resolving]
  - Hepatic enzyme increased [Unknown]
  - Constipation [Recovering/Resolving]

NARRATIVE: CASE EVENT DATE: 20170622
